FAERS Safety Report 6369969-2 (Version None)
Quarter: 2009Q3

REPORT INFORMATION
  Report Type: 
  Country: None (occurrence: None)
  Receive Date: 20090923
  Receipt Date: 20071106
  Transmission Date: 20100115
  Serious: No
  Sender: FDA-Public Use
  Company Number: US-ASTRAZENECA-2006UW02384

PATIENT
  Age: 17882 Day
  Sex: Male
  Weight: 131.5 kg

DRUGS (14)
  1. SEROQUEL [Suspect]
     Indication: ANXIETY
     Dosage: 200-300 MG
     Route: 048
     Dates: start: 20041011, end: 20051208
  2. SEROQUEL [Suspect]
     Indication: DEPRESSION
     Dosage: 200-300 MG
     Route: 048
     Dates: start: 20041011, end: 20051208
  3. ZYPREXA [Suspect]
     Indication: DEPRESSION
     Dosage: 5 MG TO 10 MG
     Dates: start: 20021029, end: 20030601
  4. ZYPREXA [Suspect]
     Indication: ANXIETY
     Dosage: 5 MG TO 10 MG
     Dates: start: 20021029, end: 20030601
  5. GLUCOPHAGE XR [Concomitant]
  6. UNIRECTIC [Concomitant]
  7. OXAPROZIN [Concomitant]
  8. LAMISIL [Concomitant]
  9. WELLBUTRIN [Concomitant]
  10. AMBIEN [Concomitant]
  11. LESCOL XL [Concomitant]
  12. ZONEGRAN [Concomitant]
  13. LORTAB [Concomitant]
  14. ACTOS [Concomitant]

REACTIONS (3)
  - ARTHRALGIA [None]
  - DIABETES MELLITUS [None]
  - TINEA INFECTION [None]
